FAERS Safety Report 6975345-1 (Version None)
Quarter: 2010Q3

REPORT INFORMATION
  Report Type: 
  Country: None (occurrence: None)
  Receive Date: 20100910
  Receipt Date: 20100901
  Transmission Date: 20110219
  Serious: Yes (Hospitalization)
  Sender: FDA-Public Use
  Company Number: US-SHIRE-ALL1-2010-04627

PATIENT
  Sex: Male
  Weight: 90.703 kg

DRUGS (14)
  1. FOSRENOL [Suspect]
     Indication: HYPERPHOSPHATAEMIA
     Dosage: 1500 MG, (UNKNOWN MG TABLETS TOTALING 1500MG) 2X/DAY:BID
     Route: 048
     Dates: start: 20070101
  2. LANTUS                             /01483501/ [Concomitant]
     Indication: DIABETES MELLITUS
     Dosage: 18 IU, 1X/DAY:QD
     Route: 058
     Dates: start: 20060101
  3. NOVOLIN R [Concomitant]
     Indication: DIABETES MELLITUS
     Dosage: UNK IU, AS REQ'D
     Route: 058
     Dates: start: 20060101
  4. SENSIPAR [Concomitant]
     Indication: DIALYSIS
     Dosage: 60 MG, 1X/DAY:QD
     Route: 048
     Dates: start: 20060101
  5. NEPHROCAPS [Concomitant]
     Indication: DIALYSIS
     Dosage: UNK, 1X/DAY:QD
     Route: 048
     Dates: start: 20060101
  6. NEURONTIN [Concomitant]
     Indication: PRODUCT USED FOR UNKNOWN INDICATION
     Dosage: 100 MG, 1X/DAY:QD
     Route: 048
  7. CELEXA [Concomitant]
     Indication: PRODUCT USED FOR UNKNOWN INDICATION
     Dosage: 20 MG, 1X/DAY:QD
     Route: 048
  8. ZOCOR [Concomitant]
     Indication: PRODUCT USED FOR UNKNOWN INDICATION
     Dosage: 80 MG, 1X/DAY:QD
     Route: 048
  9. ASPIRIN [Concomitant]
     Indication: PRODUCT USED FOR UNKNOWN INDICATION
     Dosage: 81 MG, 1X/DAY:QD
     Route: 048
  10. PEPCID [Concomitant]
     Indication: PRODUCT USED FOR UNKNOWN INDICATION
     Dosage: 20 MG, 1X/DAY:QD
     Route: 048
  11. PRIMATENE MIST [Concomitant]
     Indication: PRODUCT USED FOR UNKNOWN INDICATION
     Dosage: 10 MG, 1X/DAY:QD
     Route: 048
  12. PLAVIX [Concomitant]
     Indication: PRODUCT USED FOR UNKNOWN INDICATION
     Dosage: 75 MG, 1X/DAY:QD
     Route: 048
  13. IMDUR [Concomitant]
     Indication: PRODUCT USED FOR UNKNOWN INDICATION
     Dosage: 30 MG, 1X/DAY:QD
     Route: 048
  14. NITROGLYCERIN [Concomitant]
     Indication: PRODUCT USED FOR UNKNOWN INDICATION
     Dosage: 2 MG, AS REQ'D
     Route: 062

REACTIONS (2)
  - CALCINOSIS [None]
  - HYPERTENSION [None]
